FAERS Safety Report 16626283 (Version 1)
Quarter: 2019Q3

REPORT INFORMATION
  Report Type: Report from Study
  Country: US (occurrence: US)
  Receive Date: 20190724
  Receipt Date: 20190724
  Transmission Date: 20191004
  Serious: Yes (Hospitalization)
  Sender: FDA-Public Use
  Company Number: US-BAUSCH-BL-2019-020263

PATIENT
  Age: 69 Year
  Sex: Female
  Weight: 64.47 kg

DRUGS (1)
  1. SILIQ [Suspect]
     Active Substance: BRODALUMAB
     Indication: PSORIASIS
     Dosage: WEEKS 0 AND 1,2 PFS-PREFILLED SYRINGE
     Route: 058
     Dates: start: 201906, end: 201907

REACTIONS (2)
  - Cardiac failure congestive [Not Recovered/Not Resolved]
  - Therapy cessation [Unknown]

NARRATIVE: CASE EVENT DATE: 201907
